FAERS Safety Report 9082346 (Version 1)
Quarter: 2013Q1

REPORT INFORMATION
  Report Type: Report from Study
  Country: US (occurrence: US)
  Receive Date: 20130130
  Receipt Date: 20130130
  Transmission Date: 20140127
  Serious: Yes (Other)
  Sender: FDA-Public Use
  Company Number: US-ABBOTT-12P-163-0968373-00

PATIENT
  Sex: Female

DRUGS (10)
  1. HUMIRA 40 MG/0.8 ML PEN [Suspect]
     Indication: PSORIASIS
     Dates: start: 200906
  2. BENADRYL [Concomitant]
     Indication: HYPERSENSITIVITY
  3. CINAMMON [Concomitant]
     Indication: SUPPLEMENTATION THERAPY
  4. FLEXERIL [Concomitant]
     Indication: MUSCLE SPASMS
  5. FOLIC ACID [Concomitant]
     Indication: PSORIASIS
  6. HYDROCHLOROTHIAZIDE [Concomitant]
     Indication: FLUID RETENTION
  7. METHOTREXATE [Concomitant]
     Indication: PSORIASIS
  8. PERCOCET [Concomitant]
     Indication: PAIN
  9. TYLENOL [Concomitant]
     Indication: PAIN
  10. VITAMIN D [Concomitant]
     Indication: VITAMIN SUPPLEMENTATION

REACTIONS (2)
  - Patella fracture [Recovering/Resolving]
  - Fall [Recovered/Resolved]
